FAERS Safety Report 15533411 (Version 3)
Quarter: 2018Q4

REPORT INFORMATION
  Report Type: Report from Study
  Country: JP (occurrence: JP)
  Receive Date: 20181019
  Receipt Date: 20181227
  Transmission Date: 20190205
  Serious: Yes (Hospitalization)
  Sender: FDA-Public Use
  Company Number: JP-ACTELION-A-CH2018-180447

PATIENT
  Age: 62 Year
  Sex: Female

DRUGS (8)
  1. ALDACTONE A [Concomitant]
     Active Substance: SPIRONOLACTONE
  2. ADCIRCA [Concomitant]
     Active Substance: TADALAFIL
  3. LASIX [Concomitant]
     Active Substance: FUROSEMIDE
  4. FLOLAN [Concomitant]
     Active Substance: EPOPROSTENOL SODIUM
  5. OPSUMIT [Suspect]
     Active Substance: MACITENTAN
     Indication: PULMONARY ARTERIAL HYPERTENSION
     Dosage: 10 MG, QD
     Route: 048
     Dates: start: 20171215
  6. THYRADIN S [Concomitant]
     Active Substance: LEVOTHYROXINE SODIUM
  7. VOGLIBOSE [Concomitant]
     Active Substance: VOGLIBOSE
  8. OXYGEN. [Concomitant]
     Active Substance: OXYGEN

REACTIONS (1)
  - Atrial fibrillation [Unknown]

NARRATIVE: CASE EVENT DATE: 20180928
